FAERS Safety Report 11911800 (Version 2)
Quarter: 2016Q2

REPORT INFORMATION
  Report Type: Spontaneous
  Country: CO (occurrence: CO)
  Receive Date: 20160112
  Receipt Date: 20160421
  Transmission Date: 20160815
  Serious: Yes (Death, Hospitalization)
  Sender: FDA-Public Use
  Company Number: CO-SPECTRUM PHARMACEUTICALS, INC.-15-F-CO-00489

PATIENT
  Age: 49 Year
  Sex: Female

DRUGS (1)
  1. FOLOTYN [Suspect]
     Active Substance: PRALATREXATE
     Indication: PERIPHERAL T-CELL LYMPHOMA UNSPECIFIED
     Dosage: 40 MG, QW (2 INFUSIONS IN 2 WEEKS)
     Route: 042
     Dates: start: 20151210

REACTIONS (5)
  - Cardiac arrest [Fatal]
  - Somnolence [Unknown]
  - Oral mucosal eruption [Unknown]
  - Bedridden [Unknown]
  - Eating disorder [Unknown]

NARRATIVE: CASE EVENT DATE: 20151218
